FAERS Safety Report 7857346 (Version 5)
Quarter: 2012Q4

REPORT INFORMATION
  Report Type: 
  Country: JP (occurrence: JP)
  Receive Date: 20110316
  Receipt Date: 20120831
  Transmission Date: 20130627
  Serious: Yes (Other)
  Sender: FDA-Public Use
  Company Number: PHHY2011JP18627

PATIENT
  Age: 10 Year
  Sex: Female
  Weight: 14 kg

DRUGS (8)
  1. SIMULECT [Suspect]
     Indication: RENAL TRANSPLANT
     Dosage: 10 mg, UNK
     Route: 042
     Dates: start: 20110302, end: 20110302
  2. PROGRAF [Concomitant]
     Indication: RENAL TRANSPLANT
     Dosage: 0.5 mg, UNK
     Route: 042
     Dates: start: 20110302, end: 20110304
  3. PROGRAF [Concomitant]
     Dosage: 3 mg, UNK
     Dates: start: 20110228, end: 20110301
  4. CELLCEPT [Concomitant]
     Indication: RENAL TRANSPLANT
     Dosage: 500 mg, UNK
     Route: 048
     Dates: start: 20110228
  5. METHYLPREDNISOLONE [Concomitant]
  6. MEDROL [Concomitant]
     Indication: RENAL TRANSPLANT
     Dosage: 125 mg, UNK
     Route: 048
     Dates: start: 20110302
  7. NU-LOTAN [Concomitant]
     Indication: HYPERTENSION
     Dosage: 0.2 DF, UNK
     Route: 048
     Dates: start: 200512
  8. NEORAL [Concomitant]
     Indication: RENAL TRANSPLANT
     Dosage: 100 mg, UNK
     Route: 048
     Dates: start: 20110305

REACTIONS (2)
  - Toxic encephalopathy [Recovered/Resolved]
  - Blood pressure decreased [Recovered/Resolved]
